FAERS Safety Report 6753122-4 (Version None)
Quarter: 2010Q2

REPORT INFORMATION
  Report Type: 
  Country: None (occurrence: None)
  Receive Date: 20100603
  Receipt Date: 20100521
  Transmission Date: 20101027
  Serious: Yes (Other)
  Sender: FDA-Public Use
  Company Number: MY-PFIZER INC-2010063886

PATIENT
  Age: 75 Year
  Sex: Male

DRUGS (4)
  1. NEURONTIN [Suspect]
     Indication: NEURALGIA
     Dosage: 900 MG, 1X/DAY
     Route: 048
     Dates: start: 20090521
  2. LOSARTAN [Concomitant]
  3. FINASTERIDE [Concomitant]
  4. DOXAZOSIN MESILATE [Concomitant]

REACTIONS (2)
  - CIRCULATORY COLLAPSE [None]
  - TREMOR [None]
